FAERS Safety Report 6591369-0 (Version None)
Quarter: 2010Q1

REPORT INFORMATION
  Report Type: 
  Country: None (occurrence: None)
  Receive Date: 20100219
  Receipt Date: 20100208
  Transmission Date: 20100710
  Serious: Yes (Hospitalization)
  Sender: FDA-Public Use
  Company Number: FR-PFIZER INC-2010017228

PATIENT
  Age: 34 Year
  Sex: Female

DRUGS (4)
  1. SOLU-MEDROL [Suspect]
     Indication: NEOPLASM MALIGNANT
     Dosage: UNK
     Route: 042
     Dates: start: 20091021, end: 20091112
  2. CARBOPLATIN [Suspect]
     Dosage: 3 DF, UNK
     Route: 042
     Dates: start: 20091021, end: 20091112
  3. AVASTIN [Suspect]
     Indication: NEOPLASM MALIGNANT
     Dosage: 2 DF, UNK
     Route: 042
     Dates: start: 20091021, end: 20091104
  4. TAXOL [Suspect]
     Indication: NEOPLASM MALIGNANT
     Dosage: 3 DF, UNK
     Route: 042
     Dates: start: 20091021, end: 20091112

REACTIONS (2)
  - RASH ERYTHEMATOUS [None]
  - RASH PUSTULAR [None]
